FAERS Safety Report 9557164 (Version 1)
Quarter: 2013Q3

REPORT INFORMATION
  Report Type: Spontaneous
  Country: US (occurrence: None)
  Receive Date: 20130724
  Receipt Date: 20130724
  Transmission Date: 20140515
  Serious: Yes (Other)
  Sender: FDA-Public Use
  Company Number: PHEH2013US007395

PATIENT
  Age: 49 Year
  Sex: Female
  Weight: 68 kg

DRUGS (6)
  1. GILENYA (FINGOLIMOD) CAPSULE, 0.5MG [Suspect]
     Indication: RELAPSING-REMITTING MULTIPLE SCLEROSIS
     Route: 048
     Dates: start: 20130211, end: 20130328
  2. DIOVAN (VALSARTAN) [Concomitant]
  3. ESTRADIOL [Concomitant]
  4. FLEXERIL (CYCLOBENZAPRINE HYDROCHLORIDE) [Concomitant]
  5. LAMICTAL (LAMOTRIGINE) [Concomitant]
  6. LYRICA (PREGABALIN) [Concomitant]

REACTIONS (2)
  - Macular oedema [None]
  - Visual acuity reduced [None]
